FAERS Safety Report 5761775-2 (Version None)
Quarter: 2008Q2

REPORT INFORMATION
  Report Type: 
  Country: None (occurrence: None)
  Receive Date: 20080606
  Receipt Date: 20080527
  Transmission Date: 20081010
  Serious: Yes (Other)
  Sender: FDA-Public Use
  Company Number: US-PFIZER INC-2008045243

PATIENT
  Sex: Female
  Weight: 61.363 kg

DRUGS (13)
  1. TRIAZOLAM [Suspect]
  2. TRIAZOLAM [Suspect]
  3. EFFEXOR [Suspect]
     Indication: DEPRESSION
  4. COZAAR [Concomitant]
  5. ATENOLOL [Concomitant]
  6. LEVOTHYROXINE SODIUM [Concomitant]
  7. METFORMIN HCL [Concomitant]
  8. CENTRUM SILVER [Concomitant]
  9. CITRUCEL [Concomitant]
  10. ASCORBIC ACID [Concomitant]
  11. NASONEX [Concomitant]
  12. ASPIRIN [Concomitant]
  13. DETROL [Concomitant]

REACTIONS (2)
  - HYPERTENSION [None]
  - KNEE ARTHROPLASTY [None]
